FAERS Safety Report 7804415-0 (Version None)
Quarter: 2011Q4

REPORT INFORMATION
  Report Type: 
  Country: None (occurrence: None)
  Receive Date: 20111010
  Receipt Date: 20110927
  Transmission Date: 20120403
  Serious: Yes (Hospitalization)
  Sender: FDA-Public Use
  Company Number: US-BAYER-2011-003031

PATIENT
  Age: 21 Year
  Sex: Female
  Weight: 75.737 kg

DRUGS (6)
  1. YAZ [Suspect]
     Indication: PREMENSTRUAL SYNDROME
  2. YAZ [Suspect]
     Indication: ACNE
  3. YAZ [Suspect]
     Indication: CONTRACEPTION
     Dosage: UNK
     Route: 048
     Dates: start: 20070101, end: 20090101
  4. TETRACYCLIN [Concomitant]
     Indication: ACNE
     Dosage: UNK
     Dates: start: 20080101
  5. RETIN-A [Concomitant]
     Indication: ACNE
     Dosage: UNK
     Dates: start: 20080101
  6. CEPHALEXIN [Concomitant]
     Dosage: UNK
     Dates: end: 20090111

REACTIONS (6)
  - PAIN IN EXTREMITY [None]
  - PULMONARY INFARCTION [None]
  - DEEP VEIN THROMBOSIS [None]
  - CHEST PAIN [None]
  - OEDEMA PERIPHERAL [None]
  - PULMONARY EMBOLISM [None]
